FAERS Safety Report 9308853 (Version 2)
Quarter: 2013Q2

REPORT INFORMATION
  Report Type: Spontaneous
  Country: CN (occurrence: CN)
  Receive Date: 20130524
  Receipt Date: 20130618
  Transmission Date: 20140414
  Serious: Yes (Death)
  Sender: FDA-Public Use
  Company Number: CN-MPIJNJ-2013-04044

PATIENT
  Sex: 0

DRUGS (3)
  1. VELCADE [Suspect]
     Indication: PRIMARY AMYLOIDOSIS
     Dosage: 1.3 MG/M2, CYCLIC
     Route: 065
  2. CYCLOPHOSPHAMIDE [Suspect]
     Indication: PRIMARY AMYLOIDOSIS
     Dosage: 200 MG, CYCLIC
     Route: 065
  3. DEXAMETHASONE [Suspect]
     Indication: PRIMARY AMYLOIDOSIS
     Dosage: 20 MG, CYCLIC
     Route: 065

REACTIONS (2)
  - Sudden death [Fatal]
  - Off label use [Unknown]
